FAERS Safety Report 7394684-6 (Version None)
Quarter: 2011Q2

REPORT INFORMATION
  Report Type: 
  Country: None (occurrence: None)
  Receive Date: 20110405
  Receipt Date: 20110328
  Transmission Date: 20111010
  Serious: Yes (Life-Threatening)
  Sender: FDA-Public Use
  Company Number: FR-AMGEN-FRACT2011002766

PATIENT
  Age: 47 Year
  Sex: Male

DRUGS (11)
  1. METFORMINE [Concomitant]
     Dosage: UNK
     Dates: start: 20080118
  2. RAMIPRIL [Concomitant]
     Dosage: UNK
     Dates: start: 20090416
  3. FILGRASTIM [Suspect]
     Indication: ANAEMIA
     Dosage: UNK
     Dates: start: 20100708
  4. INTELENCE [Concomitant]
     Dosage: UNK
     Dates: start: 20090416
  5. RIBAVIRIN [Concomitant]
     Indication: HEPATITIS VIRAL
     Dosage: 200 MG, Q4H
     Route: 065
     Dates: start: 20100624
  6. ISENTRESS [Concomitant]
     Dosage: UNK
     Dates: start: 20090416
  7. PEGINTERFERON ALFA-2A [Concomitant]
     Indication: HEPATITIS VIRAL
     Dosage: 168 A?G, QWK
     Route: 065
     Dates: start: 20100226
  8. LEDERFOLINE [Concomitant]
     Dosage: UNK
     Dates: start: 20100708
  9. CRESTOR [Concomitant]
  10. KEPPRA [Concomitant]
     Dosage: UNK
     Dates: start: 20060115
  11. EPOETIN BETA [Concomitant]
     Indication: NEUTROPENIA
     Dosage: 3000 IU, UNK
     Route: 065
     Dates: start: 20100722

REACTIONS (1)
  - B-CELL LYMPHOMA [None]
